FAERS Safety Report 25066860 (Version 1)
Quarter: 2025Q1

REPORT INFORMATION
  Report Type: Spontaneous
  Country: MX (occurrence: MX)
  Receive Date: 20250312
  Receipt Date: 20250312
  Transmission Date: 20250409
  Serious: Yes (Other)
  Sender: ROCHE
  Company Number: MX-ROCHE-10000217751

PATIENT
  Age: 71 Year

DRUGS (1)
  1. VABYSMO [Suspect]
     Active Substance: FARICIMAB-SVOA
     Indication: Neovascular age-related macular degeneration
     Dosage: DOSE: 6 MG / 0.5 ML
     Route: 050
     Dates: start: 20240125, end: 20250218

REACTIONS (3)
  - Ill-defined disorder [Not Recovered/Not Resolved]
  - Ocular vasculitis [Recovered/Resolved]
  - Vitritis [Not Recovered/Not Resolved]

NARRATIVE: CASE EVENT DATE: 20250219
